FAERS Safety Report 10163372 (Version 2)
Quarter: 2014Q2

REPORT INFORMATION
  Report Type: Spontaneous
  Country: US (occurrence: US)
  Receive Date: 20140509
  Receipt Date: 20140512
  Transmission Date: 20141212
  Serious: No
  Sender: FDA-Public Use
  Company Number: US-PFIZER INC-2014124631

PATIENT
  Age: 51 Year
  Sex: Male
  Weight: 81.6 kg

DRUGS (1)
  1. DEPO-TESTOSTERONE [Suspect]
     Indication: ANDROGEN DEFICIENCY
     Dosage: 1 MG, WEEKLY (ONCE A WEEK)

REACTIONS (2)
  - Musculoskeletal pain [Not Recovered/Not Resolved]
  - Product deposit [Unknown]
